FAERS Safety Report 9424382 (Version 1)
Quarter: 2013Q3

REPORT INFORMATION
  Report Type: Spontaneous
  Country: US (occurrence: None)
  Receive Date: 20130726
  Receipt Date: 20130726
  Transmission Date: 20140515
  Serious: Yes (Hospitalization)
  Sender: FDA-Public Use
  Company Number: None

PATIENT
  Age: 93 Year
  Sex: Female

DRUGS (11)
  1. LEVOFLOXACIN [Suspect]
     Indication: PNEUMONIA
     Route: 048
     Dates: start: 20130410, end: 20130417
  2. APAP [Concomitant]
  3. ASA [Concomitant]
  4. ATENOLOL [Concomitant]
  5. CALCIUM [Concomitant]
  6. CYCLOBENZAPRINE [Concomitant]
  7. FEXOFENADINE [Concomitant]
  8. LORAZEPAM [Concomitant]
  9. OXYCODONE [Concomitant]
  10. PANTOPRAZOLE [Concomitant]
  11. POTASSIUM [Concomitant]

REACTIONS (2)
  - Polyarthritis [None]
  - Arthralgia [None]
